FAERS Safety Report 19570356 (Version 1)
Quarter: 2021Q3

REPORT INFORMATION
  Report Type: Spontaneous
  Country: AR (occurrence: AR)
  Receive Date: 20210716
  Receipt Date: 20210716
  Transmission Date: 20211014
  Serious: Yes (Other)
  Sender: FDA-Public Use
  Company Number: AR-PFIZER INC-2021841465

PATIENT
  Age: 64 Year
  Sex: Female

DRUGS (1)
  1. XELJANZ [Suspect]
     Active Substance: TOFACITINIB CITRATE
     Indication: RHEUMATOID ARTHRITIS
     Dosage: 5 MG, 2X/DAY
     Dates: start: 20191213

REACTIONS (7)
  - Immobile [Unknown]
  - Pain in extremity [Unknown]
  - Pain [Unknown]
  - Skin induration [Unknown]
  - Gait disturbance [Unknown]
  - Vein rupture [Unknown]
  - Haematoma [Unknown]
